FAERS Safety Report 26199520 (Version 1)
Quarter: 2025Q4

REPORT INFORMATION
  Report Type: Spontaneous
  Country: EU (occurrence: EU)
  Receive Date: 20251225
  Receipt Date: 20251225
  Transmission Date: 20260117
  Serious: Yes (Hospitalization, Other)
  Sender: SANOFI AVENTIS
  Company Number: None

PATIENT
  Age: 87 Year
  Sex: Male
  Weight: 82 kg

DRUGS (2)
  1. LOVENOX [Interacting]
     Active Substance: ENOXAPARIN SODIUM
     Indication: Deep vein thrombosis
     Dosage: 12000 IU, QD
     Route: 058
     Dates: start: 20250908, end: 20250926
  2. ASPIRIN [Interacting]
     Active Substance: ASPIRIN
     Indication: Venoocclusive disease
     Dosage: 100 MG, QD
     Route: 048
     Dates: start: 20250820, end: 20250926

REACTIONS (4)
  - Hemiparesis [Recovered/Resolved]
  - Subdural haematoma [Recovering/Resolving]
  - Condition aggravated [Recovering/Resolving]
  - Dysarthria [Recovered/Resolved]

NARRATIVE: CASE EVENT DATE: 20250926
